FAERS Safety Report 23163023 (Version 3)
Quarter: 2023Q4

REPORT INFORMATION
  Report Type: Spontaneous
  Country: CN (occurrence: None)
  Receive Date: 20231109
  Receipt Date: 20231122
  Transmission Date: 20240110
  Serious: Yes (Hospitalization, Disabling, Other)
  Sender: FDA-Public Use
  Company Number: 2023A250236

PATIENT
  Age: 72 Year
  Sex: Male

DRUGS (1)
  1. IMFINZI [Suspect]
     Active Substance: DURVALUMAB
     Indication: Small cell lung cancer

REACTIONS (11)
  - Movement disorder [Unknown]
  - Gait disturbance [Unknown]
  - Neuropathy peripheral [Unknown]
  - Neurosis [Unknown]
  - Anal incontinence [Unknown]
  - Urinary incontinence [Unknown]
  - Limb discomfort [Unknown]
  - Feeding disorder [Unknown]
  - Hypophagia [Unknown]
  - Asthenia [Unknown]
  - Nervous system disorder [Unknown]
